FAERS Safety Report 10210273 (Version 1)
Quarter: 2014Q2

REPORT INFORMATION
  Report Type: Spontaneous
  Country: US (occurrence: None)
  Receive Date: 20140529
  Receipt Date: 20140529
  Transmission Date: 20141212
  Serious: Yes (Hospitalization)
  Sender: FDA-Public Use
  Company Number: None

PATIENT
  Age: 84 Year
  Sex: Female

DRUGS (16)
  1. FORTEO [Suspect]
     Indication: SENILE OSTEOPOROSIS
     Dosage: 20 MCG DAILY SUB Q
     Route: 058
     Dates: start: 20140502
  2. AMLODIPINE BESYLATE [Concomitant]
  3. HYDRALAZINE [Concomitant]
  4. METOPROLOL TART [Concomitant]
  5. LOVASTATIN [Concomitant]
  6. PRIMIDONE [Concomitant]
  7. OMEPRAZOLE [Concomitant]
  8. ONDANSETRON HCL [Concomitant]
  9. TRAMADOL HCL [Concomitant]
  10. CYCLOBENZAPRINE [Concomitant]
  11. CENTRUM SILVER [Concomitant]
  12. OCUVIT [Concomitant]
  13. CITRACAL D3 [Concomitant]
  14. VITAMIN D3 [Concomitant]
  15. ZINC [Concomitant]
  16. ASPIRIN [Concomitant]

REACTIONS (2)
  - Hospitalisation [None]
  - Therapy cessation [None]
